FAERS Safety Report 9203750 (Version 1)
Quarter: 2013Q1

REPORT INFORMATION
  Report Type: Spontaneous
  Country: US (occurrence: None)
  Receive Date: 20120709
  Receipt Date: 20120709
  Transmission Date: 20140127
  Serious: No
  Sender: FDA-Public Use
  Company Number: 2012HGS-003675

PATIENT
  Age: 24 Year
  Sex: Female
  Weight: 78.02 kg

DRUGS (3)
  1. BENLYSTA [Suspect]
     Indication: SYSTEMIC LUPUS ERYTHEMATOSUS
     Dosage: 1 IN 14 D
     Route: 041
     Dates: start: 20120410
  2. MIRALAX (MACROGOL) (MACROGOL) [Concomitant]
  3. OMEPRAZOLE (OMEPRAZOLE) (OMEPRAZOLE) [Concomitant]

REACTIONS (4)
  - Haematochezia [None]
  - Asthenia [None]
  - Polymenorrhoea [None]
  - Dizziness [None]
